FAERS Safety Report 5448420-0 (Version None)
Quarter: 2007Q3

REPORT INFORMATION
  Report Type: 
  Country: None (occurrence: None)
  Receive Date: 20070906
  Receipt Date: 20070822
  Transmission Date: 20080115
  Serious: Yes (Hospitalization)
  Sender: FDA-Public Use
  Company Number: 002#4#2007-00154

PATIENT
  Sex: Female

DRUGS (2)
  1. GLYCOLAX [Suspect]
     Indication: DRUG USE FOR UNKNOWN INDICATION
  2. MIRALAX [Concomitant]

REACTIONS (3)
  - DRUG INTOLERANCE [None]
  - INTESTINAL OBSTRUCTION [None]
  - MALAISE [None]
